FAERS Safety Report 15493279 (Version 2)
Quarter: 2018Q4

REPORT INFORMATION
  Report Type: Spontaneous
  Country: US (occurrence: US)
  Receive Date: 20181012
  Receipt Date: 20181017
  Transmission Date: 20190205
  Serious: Yes (Life-Threatening)
  Sender: FDA-Public Use
  Company Number: US-LPDUSPRD-20181850

PATIENT
  Age: 27 Year
  Sex: Female
  Weight: 90.9 kg

DRUGS (2)
  1. MIRCERA [Suspect]
     Active Substance: METHOXY POLYETHYLENE GLYCOL-EPOETIN BETA
     Dosage: 50 MCG, 1 IN 2 WK
     Route: 040
     Dates: start: 20180619
  2. VENOFER [Suspect]
     Active Substance: IRON SUCROSE
     Dosage: 100 MG, EVERY TREATMENT
     Route: 040
     Dates: start: 20180920

REACTIONS (7)
  - Vomiting [Unknown]
  - Dyspnoea [Unknown]
  - Back pain [Unknown]
  - Erythema [Unknown]
  - Nausea [Unknown]
  - Swollen tongue [Unknown]
  - Chest pain [Unknown]

NARRATIVE: CASE EVENT DATE: 20180920
